FAERS Safety Report 12809501 (Version 7)
Quarter: 2017Q2

REPORT INFORMATION
  Report Type: Report from Study
  Country: CN (occurrence: CN)
  Receive Date: 20161005
  Receipt Date: 20170612
  Transmission Date: 20170830
  Serious: Yes (Hospitalization)
  Sender: FDA-Public Use
  Company Number: CN-ROCHE-1834775

PATIENT
  Age: 40 Year
  Sex: Male
  Weight: 59.5 kg

DRUGS (10)
  1. BUDESONIDE. [Concomitant]
     Active Substance: BUDESONIDE
     Route: 055
     Dates: start: 20160923, end: 20160928
  2. BROMINE AMMONIUM [Concomitant]
     Route: 065
     Dates: start: 20160923, end: 20160928
  3. UBENIMEX [Concomitant]
     Active Substance: UBENIMEX
     Dosage: TO ENHANCE IMMUNITY
     Route: 065
     Dates: end: 20160826
  4. BISACODYL. [Concomitant]
     Active Substance: BISACODYL
     Route: 065
     Dates: start: 20160922, end: 20160922
  5. DICLOFENAC SODIUM. [Concomitant]
     Active Substance: DICLOFENAC SODIUM
     Dosage: SUSTAINED RELEASE
     Route: 065
     Dates: start: 20160926, end: 20160930
  6. NEOSTIGMINE METHYLSULFATE. [Concomitant]
     Active Substance: NEOSTIGMINE METHYLSULFATE
     Route: 065
     Dates: start: 20160923, end: 20160923
  7. AMBROXOL HYDROCHLORIDE [Concomitant]
     Active Substance: AMBROXOL HYDROCHLORIDE
     Route: 065
     Dates: start: 20160923, end: 20160928
  8. ATEZOLIZUMAB [Suspect]
     Active Substance: ATEZOLIZUMAB
     Indication: NON-SMALL CELL LUNG CANCER
     Dosage: MOST RECENT DOSE PRIOR TO ONSET OF ACUTE CHOLECYSTITIS WAS 31/AUG/2016.
     Route: 042
     Dates: start: 20160831
  9. OXYCONTIN [Concomitant]
     Active Substance: OXYCODONE HYDROCHLORIDE
     Route: 065
     Dates: start: 20160925, end: 20161001
  10. DICLOFENAC SODIUM. [Concomitant]
     Active Substance: DICLOFENAC SODIUM
     Route: 065
     Dates: start: 20160925, end: 20160925

REACTIONS (1)
  - Cholecystitis acute [Recovered/Resolved]

NARRATIVE: CASE EVENT DATE: 20160922
